FAERS Safety Report 12294633 (Version 1)
Quarter: 2016Q2

REPORT INFORMATION
  Report Type: Spontaneous
  Country: US (occurrence: US)
  Receive Date: 20160422
  Receipt Date: 20160422
  Transmission Date: 20160815
  Serious: Yes (Other)
  Sender: FDA-Public Use
  Company Number: US-TEVA-653055USA

PATIENT
  Age: 48 Year
  Sex: Female

DRUGS (1)
  1. ZECUITY [Suspect]
     Active Substance: SUMATRIPTAN SUCCINATE
     Indication: MIGRAINE
     Route: 062

REACTIONS (8)
  - Application site pruritus [Recovering/Resolving]
  - Application site rash [Unknown]
  - Application site erythema [Recovering/Resolving]
  - Application site discolouration [Unknown]
  - Application site swelling [Recovering/Resolving]
  - Drug ineffective [Unknown]
  - Application site papules [Recovering/Resolving]
  - Application site burn [Recovering/Resolving]

NARRATIVE: CASE EVENT DATE: 201604
